FAERS Safety Report 9696285 (Version 1)
Quarter: 2013Q4

REPORT INFORMATION
  Report Type: Spontaneous
  Country: US (occurrence: US)
  Receive Date: 20131119
  Receipt Date: 20131119
  Transmission Date: 20140711
  Serious: No
  Sender: FDA-Public Use
  Company Number: US-009507513-1311USA007196

PATIENT
  Sex: Male

DRUGS (3)
  1. JANUMET [Suspect]
     Route: 048
  2. NOVOLOG [Concomitant]
  3. LEVEMIR [Concomitant]

REACTIONS (1)
  - Diarrhoea [Unknown]
